FAERS Safety Report 6551623-5 (Version None)
Quarter: 2010Q1

REPORT INFORMATION
  Report Type: 
  Country: None (occurrence: None)
  Receive Date: 20100120
  Receipt Date: 20100107
  Transmission Date: 20100710
  Serious: Yes (Hospitalization, Other)
  Sender: FDA-Public Use
  Company Number: CAP10000018

PATIENT
  Age: 82 Year
  Sex: Female
  Weight: 59 kg

DRUGS (2)
  1. ACTONEL [Suspect]
     Dosage: 5 MG
  2. ACTONEL [Suspect]
     Dosage: 35 MG

REACTIONS (3)
  - ARRHYTHMIA [None]
  - ATRIAL FIBRILLATION [None]
  - EXTRASYSTOLES [None]
